FAERS Safety Report 9341517 (Version 2)
Quarter: 2013Q3

REPORT INFORMATION
  Report Type: Spontaneous
  Country: US (occurrence: US)
  Receive Date: 20130611
  Receipt Date: 20130806
  Transmission Date: 20140515
  Serious: No
  Sender: FDA-Public Use
  Company Number: US-009507513-1306USA000078

PATIENT
  Age: 54 Year
  Sex: Male
  Weight: 87.75 kg

DRUGS (6)
  1. VICTRELIS [Suspect]
     Dosage: TAKE 800 MG (4 CAPSULES) BY MOUTH THREE TIMES A DAY (EVERY 7-9 HOURS) WITH FOOD (BEGIN AT WEEK 5)
     Route: 048
  2. VICTRELIS [Suspect]
     Dosage: 1 PILL 3 TIMES A DAY
     Dates: start: 2013
  3. REBETOL [Suspect]
     Route: 048
  4. PEGASYS [Suspect]
  5. OMEPRAZOLE [Concomitant]
     Route: 048
  6. VITAMINS (UNSPECIFIED) [Concomitant]
     Route: 048

REACTIONS (8)
  - Weight decreased [Unknown]
  - Anaemia [Unknown]
  - Fatigue [Unknown]
  - Dysgeusia [Unknown]
  - Dry mouth [Unknown]
  - Diarrhoea [Unknown]
  - Haemoglobin decreased [Unknown]
  - Depression [Unknown]
